FAERS Safety Report 15285449 (Version 1)
Quarter: 2018Q3

REPORT INFORMATION
  Report Type: Spontaneous
  Country: US (occurrence: US)
  Receive Date: 20180801
  Receipt Date: 20180801
  Transmission Date: 20181010
  Serious: No
  Sender: FDA-Public Use
  Company Number: None

PATIENT
  Age: 82 Year
  Sex: Male
  Weight: 63.5 kg

DRUGS (7)
  1. LEVULAN KERASTICK [Suspect]
     Active Substance: AMINOLEVULINIC ACID HYDROCHLORIDE
     Indication: PRECANCEROUS SKIN LESION
     Dates: start: 20180724
  2. NICOTINAMIDE [Concomitant]
     Active Substance: NIACINAMIDE
  3. LEVULAN KERASTICK [Suspect]
     Active Substance: AMINOLEVULINIC ACID HYDROCHLORIDE
     Indication: ACTINIC KERATOSIS
     Dates: start: 20180724
  4. DOXAZOSIN MESYLATE. [Concomitant]
     Active Substance: DOXAZOSIN MESYLATE
  5. OMEPRAZOLE. [Concomitant]
     Active Substance: OMEPRAZOLE
  6. VITAMIN B?3 COMPLEX [Concomitant]
  7. KIRCLAND OCUSIGHT WITH LUTEIN + OMEGA?3 [Concomitant]

REACTIONS (8)
  - Application site pruritus [None]
  - Application site reaction [None]
  - Application site pain [None]
  - Rash macular [None]
  - Drug ineffective [None]
  - Application site erythema [None]
  - Sleep disorder [None]
  - Application site swelling [None]

NARRATIVE: CASE EVENT DATE: 20180724
